FAERS Safety Report 13387767 (Version 2)
Quarter: 2017Q2

REPORT INFORMATION
  Report Type: Report from Study
  Country: CL (occurrence: CL)
  Receive Date: 20170330
  Receipt Date: 20170412
  Transmission Date: 20170830
  Serious: Yes (Other)
  Sender: FDA-Public Use
  Company Number: CL-ACTELION-A-NJ2017-150581

PATIENT
  Age: 44 Year
  Sex: Female

DRUGS (13)
  1. OMEPRAZOL [Concomitant]
     Active Substance: OMEPRAZOLE
  2. ALLOPURINOL. [Concomitant]
     Active Substance: ALLOPURINOL
  3. DIPYRONE [Concomitant]
     Active Substance: DIPYRONE
     Dosage: UNK
  4. VENTAVIS [Suspect]
     Active Substance: ILOPROST
     Indication: PULMONARY HYPERTENSION
     Dosage: 10 MCG/ML
     Route: 055
  5. BOSENTAN. [Concomitant]
     Active Substance: BOSENTAN
     Indication: PULMONARY HYPERTENSION
  6. ACETAMINOPHEN. [Concomitant]
     Active Substance: ACETAMINOPHEN
  7. CHLORAMPHENICOL [Concomitant]
     Active Substance: CHLORAMPHENICOL
  8. VENTAVIS [Suspect]
     Active Substance: ILOPROST
     Dosage: 1 DF, 7ID
     Route: 055
     Dates: start: 20150805
  9. SPIRONOLACTONE. [Concomitant]
     Active Substance: SPIRONOLACTONE
  10. LACTULOSE. [Concomitant]
     Active Substance: LACTULOSE
  11. FUROSEMIDE. [Concomitant]
     Active Substance: FUROSEMIDE
  12. ADEMPAS [Concomitant]
     Active Substance: RIOCIGUAT
  13. SILDENAFIL. [Concomitant]
     Active Substance: SILDENAFIL

REACTIONS (8)
  - Headache [Unknown]
  - Gingival pain [Unknown]
  - Arrhythmia [Unknown]
  - Off label use [Unknown]
  - Dizziness [Not Recovered/Not Resolved]
  - Nausea [Not Recovered/Not Resolved]
  - Arthralgia [Unknown]
  - Pain in extremity [Unknown]

NARRATIVE: CASE EVENT DATE: 20170222
